FAERS Safety Report 6829489-5 (Version None)
Quarter: 2010Q3

REPORT INFORMATION
  Report Type: 
  Country: None (occurrence: None)
  Receive Date: 20100709
  Receipt Date: 20070323
  Transmission Date: 20110219
  Serious: No
  Sender: FDA-Public Use
  Company Number: US-PFIZER INC-2007013441

PATIENT
  Sex: Male
  Weight: 58.06 kg

DRUGS (7)
  1. CHANTIX [Suspect]
  2. ROXICODONE [Concomitant]
  3. PREDNISONE [Concomitant]
  4. SULINDAC [Concomitant]
  5. LEXAPRO [Concomitant]
  6. METHOTREXATE [Concomitant]
  7. FOLIC ACID [Concomitant]

REACTIONS (2)
  - DYSURIA [None]
  - PENILE SWELLING [None]
